FAERS Safety Report 5732969-7 (Version None)
Quarter: 2008Q2

REPORT INFORMATION
  Report Type: 
  Country: None (occurrence: None)
  Receive Date: 20080507
  Receipt Date: 20080507
  Transmission Date: 20081010
  Serious: Yes (Life-Threatening, Hospitalization)
  Sender: FDA-Public Use
  Company Number: None

PATIENT
  Age: 90 Year
  Sex: Female
  Weight: 51.7101 kg

DRUGS (1)
  1. DIGITEK  0.125MG  MYLAN/UDL [Suspect]
     Indication: ATRIAL FIBRILLATION
     Dosage: ONE TABLET EVERY DAY PO
     Route: 048
     Dates: start: 20080306, end: 20080318

REACTIONS (3)
  - DISORIENTATION [None]
  - FALL [None]
  - THROMBOSIS [None]
